FAERS Safety Report 25179161 (Version 1)
Quarter: 2025Q2

REPORT INFORMATION
  Report Type: Spontaneous
  Country: US (occurrence: US)
  Receive Date: 20250409
  Receipt Date: 20250409
  Transmission Date: 20250716
  Serious: Yes (Other)
  Sender: GLAND PHARMA LTD
  Company Number: US-GLANDPHARMA-US-2025GLNLIT00917

PATIENT
  Age: 73 Year
  Sex: Male

DRUGS (5)
  1. MITOMYCIN [Suspect]
     Active Substance: MITOMYCIN
     Indication: Glaucoma drainage device placement
     Route: 065
  2. CEFUROXIME [Suspect]
     Active Substance: CEFUROXIME
     Indication: Glaucoma drainage device placement
  3. DEXAMETHASONE [Suspect]
     Active Substance: DEXAMETHASONE
     Indication: Glaucoma drainage device placement
     Route: 057
  4. LIDOCAINE [Concomitant]
     Active Substance: LIDOCAINE
  5. SODIUM HYALURONATE [Concomitant]
     Active Substance: HYALURONATE SODIUM
     Route: 065

REACTIONS (3)
  - Retinal toxicity [Unknown]
  - Wrong technique in product usage process [Unknown]
  - Product use in unapproved indication [Unknown]
